FAERS Safety Report 7921790 (Version 2)
Quarter: 2012Q4

REPORT INFORMATION
  Report Type: 
  Country: US (occurrence: US)
  Receive Date: 20110429
  Receipt Date: 20121120
  Transmission Date: 20130627
  Serious: No
  Sender: FDA-Public Use
  Company Number: US-ASTRAZENECA-2010SE54027

PATIENT
  Age: 919 Month
  Sex: Female
  Weight: 68.9 kg

DRUGS (16)
  1. NEXIUM [Suspect]
     Indication: HIATUS HERNIA
     Route: 048
  2. NEXIUM [Suspect]
     Indication: DYSPEPSIA
     Route: 048
  3. NEXIUM [Suspect]
     Indication: GASTROOESOPHAGEAL REFLUX DISEASE
     Route: 048
  4. NEXIUM [Suspect]
     Indication: HIATUS HERNIA
     Route: 048
  5. NEXIUM [Suspect]
     Indication: DYSPEPSIA
     Route: 048
  6. NEXIUM [Suspect]
     Indication: GASTROOESOPHAGEAL REFLUX DISEASE
     Route: 048
  7. NEXIUM [Suspect]
     Indication: HIATUS HERNIA
     Route: 048
  8. NEXIUM [Suspect]
     Indication: DYSPEPSIA
     Route: 048
  9. NEXIUM [Suspect]
     Indication: GASTROOESOPHAGEAL REFLUX DISEASE
     Route: 048
  10. NORVASC [Concomitant]
     Indication: BLOOD PRESSURE ABNORMAL
  11. HYZAAR [Concomitant]
  12. PAXIL [Concomitant]
  13. B12 [Concomitant]
  14. B6 [Concomitant]
  15. CALCIUM [Concomitant]
  16. HYDRAZIDE [Concomitant]
     Dosage: 100.25, UNKNOWN

REACTIONS (4)
  - Tremor [Unknown]
  - Dyspepsia [Unknown]
  - Off label use [Unknown]
  - Intentional drug misuse [Unknown]
